FAERS Safety Report 14471514 (Version 1)
Quarter: 2018Q1

REPORT INFORMATION
  Report Type: Spontaneous
  Country: US (occurrence: US)
  Receive Date: 20180131
  Receipt Date: 20180131
  Transmission Date: 20180509
  Serious: Yes (Hospitalization)
  Sender: FDA-Public Use
  Company Number: US-EISAI MEDICAL RESEARCH-EC-2018-035351

PATIENT
  Age: 41 Year
  Sex: Male

DRUGS (4)
  1. FYCOMPA [Suspect]
     Active Substance: PERAMPANEL
     Indication: EPILEPSY
     Dosage: UNKNOWN
     Route: 048
  2. FYCOMPA [Suspect]
     Active Substance: PERAMPANEL
     Dosage: DOSAGE UNKNOWN (OVERDOSE)
     Route: 048
  3. FYCOMPA [Suspect]
     Active Substance: PERAMPANEL
     Dosage: UNKNOWN
     Route: 048
  4. FYCOMPA [Suspect]
     Active Substance: PERAMPANEL
     Route: 048

REACTIONS (3)
  - Overdose [Recovered/Resolved]
  - Encephalopathy [Recovered/Resolved]
  - Aggression [Recovered/Resolved]
